FAERS Safety Report 15487394 (Version 1)
Quarter: 2018Q4

REPORT INFORMATION
  Report Type: Spontaneous
  Country: PL (occurrence: PL)
  Receive Date: 20181011
  Receipt Date: 20181011
  Transmission Date: 20190205
  Serious: Yes (Life-Threatening, Hospitalization, Other)
  Sender: FDA-Public Use
  Company Number: PL-BAYER-2018-185147

PATIENT
  Age: 58 Year
  Sex: Female

DRUGS (15)
  1. CIPROFLOXACIN. [Suspect]
     Active Substance: CIPROFLOXACIN
     Indication: PRODUCT USED FOR UNKNOWN INDICATION
     Dosage: UNK
  2. LINEZOLID. [Suspect]
     Active Substance: LINEZOLID
     Indication: PRODUCT USED FOR UNKNOWN INDICATION
     Dosage: UNK
  3. METHYLPREDNISOLONE. [Suspect]
     Active Substance: METHYLPREDNISOLONE
     Indication: PRODUCT USED FOR UNKNOWN INDICATION
     Dosage: 500 MG, UNK
     Route: 042
  4. ACETYLSALICYLIC ACID({=100 MG) [Suspect]
     Active Substance: ASPIRIN
     Dosage: UNK
  5. FLUCONAZOLE. [Suspect]
     Active Substance: FLUCONAZOLE
     Indication: PRODUCT USED FOR UNKNOWN INDICATION
  6. CLOPIDOGREL [Suspect]
     Active Substance: CLOPIDOGREL BISULFATE
     Indication: PRODUCT USED FOR UNKNOWN INDICATION
     Dosage: UNK
  7. MEROPENEM. [Suspect]
     Active Substance: MEROPENEM
     Indication: PRODUCT USED FOR UNKNOWN INDICATION
     Dosage: UNK
  8. MIDAZOLAM [Suspect]
     Active Substance: MIDAZOLAM HYDROCHLORIDE
     Indication: SEDATION
     Dosage: UNK
     Route: 065
  9. SIMULECT [Suspect]
     Active Substance: BASILIXIMAB
     Indication: RENAL TRANSPLANT
     Dosage: UNK
  10. TICAGRELOR. [Suspect]
     Active Substance: TICAGRELOR
     Indication: PRODUCT USED FOR UNKNOWN INDICATION
     Dosage: UNK
  11. TACROLIMUS. [Suspect]
     Active Substance: TACROLIMUS
     Indication: RENAL TRANSPLANT
  12. PIPERACILLIN AND TAZOBACTAM [Suspect]
     Active Substance: PIPERACILLIN SODIUM\TAZOBACTAM SODIUM
     Indication: PRODUCT USED FOR UNKNOWN INDICATION
     Dosage: UNK
  13. NORADRENALINE [Concomitant]
     Active Substance: NOREPINEPHRINE
     Indication: PRODUCT USED FOR UNKNOWN INDICATION
  14. CICLOSPORIN [Suspect]
     Active Substance: CYCLOSPORINE
     Indication: PRODUCT USED FOR UNKNOWN INDICATION
  15. TACROLIMUS. [Suspect]
     Active Substance: TACROLIMUS
     Indication: RENAL TRANSPLANT
     Dosage: UNK
     Route: 065

REACTIONS (33)
  - Escherichia urinary tract infection [Unknown]
  - Pulmonary congestion [Unknown]
  - Blood creatinine increased [Unknown]
  - Intermittent claudication [Unknown]
  - Upper respiratory tract infection [Unknown]
  - Haematoma [Not Recovered/Not Resolved]
  - Coronary artery stenosis [Unknown]
  - Inflammatory marker increased [Recovering/Resolving]
  - Electrocardiogram ST segment depression [Unknown]
  - Acid base balance abnormal [Recovering/Resolving]
  - Cardiogenic shock [Recovered/Resolved]
  - Oedema peripheral [Unknown]
  - Hypotonia [Unknown]
  - Acute coronary syndrome [Unknown]
  - Transplant rejection [Unknown]
  - Cardiac failure [Unknown]
  - Extremity necrosis [Unknown]
  - Arteriosclerosis [Unknown]
  - Arrhythmia [Unknown]
  - Renal function test abnormal [Unknown]
  - Electrolyte imbalance [Recovered/Resolved]
  - Diabetic macroangiopathy [Unknown]
  - Delayed graft function [Unknown]
  - Dyspnoea [Unknown]
  - Thrombocytosis [Unknown]
  - Loss of consciousness [Unknown]
  - Immunosuppressant drug level increased [Unknown]
  - Cardiac arrest [Not Recovered/Not Resolved]
  - Cardiotoxicity [Unknown]
  - Anaemia [Unknown]
  - Pneumonitis [Not Recovered/Not Resolved]
  - Brain natriuretic peptide increased [Unknown]
  - Anuria [Not Recovered/Not Resolved]
